FAERS Safety Report 15976373 (Version 2)
Quarter: 2019Q2

REPORT INFORMATION
  Report Type: Report from Study
  Country: IL (occurrence: IL)
  Receive Date: 20190218
  Receipt Date: 20190625
  Transmission Date: 20190711
  Serious: Yes (Hospitalization)
  Sender: FDA-Public Use
  Company Number: IL-SA-2019SA039478

PATIENT
  Age: 76 Year
  Sex: Male

DRUGS (3)
  1. VICTOZA [Concomitant]
     Active Substance: LIRAGLUTIDE
     Dosage: UNK
  2. INSULIN GLARGINE/LIXISENATIDE [Suspect]
     Active Substance: INSULIN GLARGINE\LIXISENATIDE
     Indication: TYPE 2 DIABETES MELLITUS
     Dosage: 20 DOSE STEPS ONCE DAILY
     Route: 058
     Dates: start: 20190103, end: 20190404
  3. TREGLUDEC [Concomitant]
     Active Substance: INSULIN DEGLUDEC
     Dosage: UNK

REACTIONS (3)
  - Contusion [Recovering/Resolving]
  - Fall [Unknown]
  - Product use issue [Unknown]

NARRATIVE: CASE EVENT DATE: 20190103
